FAERS Safety Report 9410186 (Version 2)
Quarter: 2014Q2

REPORT INFORMATION
  Report Type: Spontaneous
  Country: US (occurrence: US)
  Receive Date: 20130719
  Receipt Date: 20140416
  Transmission Date: 20141212
  Serious: Yes (Hospitalization, Other)
  Sender: FDA-Public Use
  Company Number: US-B.I. PHARMACEUTICALS,INC./RIDGEFIELD-2013-BI-20572BP

PATIENT
  Age: 80 Year
  Sex: Male
  Weight: 86.18 kg

DRUGS (10)
  1. PRADAXA [Suspect]
     Indication: ATRIAL FIBRILLATION
     Dosage: 300 MG
     Route: 065
     Dates: start: 20110505
  2. ATENOLOL [Concomitant]
     Dosage: 25 MG
     Route: 065
  3. NIASPAN [Concomitant]
     Dosage: 200 MG
     Route: 065
  4. CRESTOR [Concomitant]
     Dosage: 20 MG
     Route: 065
  5. LASIX [Concomitant]
     Dosage: 40 MG
     Route: 065
  6. LISINOPRIL [Concomitant]
     Dosage: 10 MG
     Route: 065
  7. ASPIRIN [Concomitant]
     Dosage: 81 MG
     Route: 065
  8. MELOXICAM [Concomitant]
     Dosage: 7.5 MG
     Route: 065
  9. CYMBALTA [Concomitant]
     Dosage: 30 MG
     Route: 065
  10. DOXYCYCLINE [Concomitant]
     Dosage: 200 MG
     Route: 065

REACTIONS (5)
  - Subdural haematoma [Unknown]
  - Respiratory failure [Unknown]
  - Deep vein thrombosis [Unknown]
  - Deep vein thrombosis [Unknown]
  - Rectal haemorrhage [Recovered/Resolved]
